FAERS Safety Report 4496480-6 (Version None)
Quarter: 2004Q3

REPORT INFORMATION
  Report Type: 
  Country: None (occurrence: None)
  Receive Date: 20040923
  Receipt Date: 20031013
  Transmission Date: 20050211
  Serious: Yes (Hospitalization)
  Sender: FDA-Public Use
  Company Number: MK200310-0117-1

PATIENT
  Age: 49 Year
  Sex: Male

DRUGS (1)
  1. MD-76R [Suspect]
     Indication: ANGIOGRAM
     Dosage: , IA, ONCE
     Route: 013
     Dates: start: 20030915, end: 20030915

REACTIONS (3)
  - FACE OEDEMA [None]
  - HYPOTENSION [None]
  - RESPIRATORY DISTRESS [None]
